FAERS Safety Report 8543563-7 (Version None)
Quarter: 2012Q3

REPORT INFORMATION
  Report Type: 
  Country: None (occurrence: None)
  Receive Date: 20120727
  Receipt Date: 20120717
  Transmission Date: 20120928
  Serious: Yes (Life-Threatening, Hospitalization, Disabling, Other)
  Sender: FDA-Public Use
  Company Number: US-BAYER-2011-068246

PATIENT
  Age: 34 Year
  Sex: Female
  Weight: 88.435 kg

DRUGS (8)
  1. NAPROSYN [Concomitant]
  2. MEDROL [Concomitant]
  3. PEPCID [Concomitant]
  4. YAZ [Suspect]
     Dosage: UNK
     Dates: start: 20050101, end: 20050701
  5. YASMIN [Suspect]
     Indication: MENSTRUAL CYCLE MANAGEMENT
     Dosage: UNK
     Dates: start: 20050101, end: 20050701
  6. DROSPIRENONE AND ETHINYL ESTRADIOL [Suspect]
     Dosage: UNK
     Dates: start: 20050101, end: 20050701
  7. EPHEDRA [Concomitant]
  8. MISOPROSTOL [Concomitant]
     Dosage: 100 MCG
     Route: 048
     Dates: start: 20050727

REACTIONS (10)
  - DEEP VEIN THROMBOSIS [None]
  - PAIN [None]
  - INJURY [None]
  - GALLBLADDER NON-FUNCTIONING [None]
  - CHOLECYSTITIS CHRONIC [None]
  - EMOTIONAL DISTRESS [None]
  - INTERNAL INJURY [None]
  - ANHEDONIA [None]
  - PULMONARY EMBOLISM [None]
  - ANXIETY [None]
